FAERS Safety Report 17087047 (Version 1)
Quarter: 2019Q4

REPORT INFORMATION
  Report Type: Spontaneous
  Country: US (occurrence: US)
  Receive Date: 20191128
  Receipt Date: 20191128
  Transmission Date: 20200122
  Serious: No
  Sender: FDA-Public Use
  Company Number: US-HIKMA PHARMACEUTICALS USA INC.-US-H14001-19-05036

PATIENT
  Age: 95 Year
  Sex: Female

DRUGS (1)
  1. ETHACRYNIC ACID. [Suspect]
     Active Substance: ETHACRYNIC ACID
     Indication: DIURETIC THERAPY
     Route: 048

REACTIONS (6)
  - Drug ineffective [Unknown]
  - Oliguria [Recovering/Resolving]
  - Dyspnoea [Recovering/Resolving]
  - General physical condition abnormal [Recovering/Resolving]
  - Weight increased [Recovering/Resolving]
  - Pruritus [Recovering/Resolving]
